FAERS Safety Report 24638401 (Version 1)
Quarter: 2024Q4

REPORT INFORMATION
  Report Type: Spontaneous
  Country: US (occurrence: None)
  Receive Date: 20241119
  Receipt Date: 20241119
  Transmission Date: 20250114
  Serious: No
  Sender: Public
  Company Number: None

PATIENT
  Age: 77 Year
  Sex: Male
  Weight: 91 kg

DRUGS (1)
  1. PRAZOSIN HYDROCHLORIDE [Suspect]
     Active Substance: PRAZOSIN HYDROCHLORIDE
     Indication: Cerebrovascular accident prophylaxis
     Dosage: FREQUENCY : DAILY;?
     Route: 048
     Dates: start: 20240813, end: 20240822

REACTIONS (3)
  - Syncope [None]
  - Hypotension [None]
  - Blood pressure fluctuation [None]

NARRATIVE: CASE EVENT DATE: 20240813
